FAERS Safety Report 18250968 (Version 2)
Quarter: 2020Q4

REPORT INFORMATION
  Report Type: Spontaneous
  Country: US (occurrence: US)
  Receive Date: 20200909
  Receipt Date: 20201011
  Transmission Date: 20210113
  Serious: No
  Sender: FDA-Public Use
  Company Number: US-LEXICON PHARMACEUTICALS, INC-20-1606-00706

PATIENT
  Age: 55 Year
  Sex: Male

DRUGS (3)
  1. XERMELO [Suspect]
     Active Substance: TELOTRISTAT ETHYL
     Indication: CARCINOID TUMOUR OF THE DUODENUM
     Dates: start: 20200512
  2. XERMELO [Suspect]
     Active Substance: TELOTRISTAT ETHYL
     Dosage: TAKES THREE TIMES DAILY ONLY WEEK PRIOR TO SANDOSTATIN INJECTION, OTHER DAYS HE TAKES ONE OR TWICE D
  3. SANDOSTATIN [Concomitant]
     Active Substance: OCTREOTIDE ACETATE

REACTIONS (1)
  - Treatment noncompliance [Not Recovered/Not Resolved]
